FAERS Safety Report 8565248-3 (Version None)
Quarter: 2012Q3

REPORT INFORMATION
  Report Type: 
  Country: None (occurrence: None)
  Receive Date: 20120803
  Receipt Date: 20120718
  Transmission Date: 20120928
  Serious: Yes (Hospitalization, Other)
  Sender: FDA-Public Use
  Company Number: GR-GLAXOSMITHKLINE-B0818443A

PATIENT
  Age: 19 Year
  Sex: Female

DRUGS (2)
  1. METOCLOPRAMIDE [Concomitant]
     Route: 042
  2. ZANTAC [Suspect]
     Indication: PRODUCT USED FOR UNKNOWN INDICATION
     Route: 042

REACTIONS (13)
  - URTICARIA [None]
  - BLOOD PRESSURE DECREASED [None]
  - DISCOMFORT [None]
  - DYSPHONIA [None]
  - PALPITATIONS [None]
  - TACHYCARDIA [None]
  - HEART RATE INCREASED [None]
  - PRURITUS GENERALISED [None]
  - INJECTION SITE ERYTHEMA [None]
  - DYSPNOEA [None]
  - SKIN TEST POSITIVE [None]
  - ANAPHYLACTIC REACTION [None]
  - LOSS OF CONSCIOUSNESS [None]
